FAERS Safety Report 12743315 (Version 3)
Quarter: 2016Q3

REPORT INFORMATION
  Report Type: Spontaneous
  Country: CA (occurrence: CA)
  Receive Date: 20160914
  Receipt Date: 20160915
  Transmission Date: 20161109
  Serious: Yes (Other)
  Sender: FDA-Public Use
  Company Number: CA-LUNDBECK-DKLU2019189

PATIENT

DRUGS (1)
  1. VIGABATRIN (TABLET) [Suspect]
     Active Substance: VIGABATRIN
     Indication: INFANTILE SPASMS
     Route: 065

REACTIONS (2)
  - Retinal toxicity [Unknown]
  - Retinal disorder [Unknown]
